FAERS Safety Report 5182910-3 (Version None)
Quarter: 2006Q4

REPORT INFORMATION
  Report Type: 
  Country: None (occurrence: None)
  Receive Date: 20061220
  Receipt Date: 20061218
  Transmission Date: 20070319
  Serious: Yes (Hospitalization)
  Sender: FDA-Public Use
  Company Number: NZ-SANOFI-SYNTHELABO-F01200602520

PATIENT
  Sex: Female

DRUGS (4)
  1. ONDANSETRON HCL [Concomitant]
     Dates: start: 20061026
  2. BEVACIZUMAB [Suspect]
     Dosage: 300 MG 1X Q3W
     Route: 042
  3. CAPECITABINE [Suspect]
     Dosage: 2600 MG TWICE DAILY FROM 1-7 DAYS Q2W
     Route: 048
  4. OXALIPLATIN [Suspect]
     Indication: COLORECTAL CANCER
     Dosage: 140 MG 1X Q3W
     Route: 042

REACTIONS (1)
  - HERPES ZOSTER [None]
